FAERS Safety Report 7125522-4 (Version None)
Quarter: 2010Q4

REPORT INFORMATION
  Report Type: 
  Country: None (occurrence: None)
  Receive Date: 20101129
  Receipt Date: 20101117
  Transmission Date: 20110411
  Serious: Yes (Hospitalization)
  Sender: FDA-Public Use
  Company Number: US-GENZYME-POMP-1001138

PATIENT
  Sex: Female
  Weight: 55.782 kg

DRUGS (1)
  1. LUMIZYME [Suspect]
     Indication: GLYCOGEN STORAGE DISEASE TYPE II
     Dosage: 1180 MG, Q2W
     Route: 042
     Dates: start: 20061030

REACTIONS (1)
  - PNEUMOTHORAX [None]
